FAERS Safety Report 6081700-7 (Version None)
Quarter: 2009Q1

REPORT INFORMATION
  Report Type: 
  Country: None (occurrence: None)
  Receive Date: 20090218
  Receipt Date: 20090106
  Transmission Date: 20090719
  Serious: Yes (Hospitalization, Other)
  Sender: FDA-Public Use
  Company Number: US-PFIZER INC-2009152108

PATIENT
  Sex: Female
  Weight: 65.76 kg

DRUGS (5)
  1. CHANTIX [Suspect]
     Indication: SMOKING CESSATION THERAPY
     Dosage: UNK
     Dates: start: 20080101, end: 20080101
  2. SOMA [Concomitant]
     Dosage: UNK
  3. VALIUM [Concomitant]
     Dosage: UNK
  4. HYDROCHLOROTHIAZIDE [Concomitant]
     Dosage: UNK
  5. NAPROSYN [Concomitant]
     Dosage: UNK

REACTIONS (6)
  - AMNESIA [None]
  - APHASIA [None]
  - CELLULITIS [None]
  - JUDGEMENT IMPAIRED [None]
  - NERVOUS SYSTEM DISORDER [None]
  - SENSORY LOSS [None]
